FAERS Safety Report 13523555 (Version 3)
Quarter: 2018Q2

REPORT INFORMATION
  Report Type: Spontaneous
  Country: US (occurrence: US)
  Receive Date: 20170508
  Receipt Date: 20180508
  Transmission Date: 20180711
  Serious: No
  Sender: FDA-Public Use
  Company Number: US-VIFOR (INTERNATIONAL) INC.-VIT-2017-01889

PATIENT
  Age: 60 Year
  Sex: Male

DRUGS (20)
  1. PROAIR HFA [Concomitant]
     Active Substance: ALBUTEROL SULFATE
  2. AMITIZA [Concomitant]
     Active Substance: LUBIPROSTONE
  3. ACETYLSALICYLIC ACID [Concomitant]
     Active Substance: ASPIRIN
  4. SPIRIVA [Concomitant]
     Active Substance: TIOTROPIUM BROMIDE MONOHYDRATE
  5. PATADAY [Concomitant]
     Active Substance: OLOPATADINE HYDROCHLORIDE
  6. ERGOCALCIFEROL. [Concomitant]
     Active Substance: ERGOCALCIFEROL
  7. METOPROLOL. [Concomitant]
     Active Substance: METOPROLOL
  8. CILOSTAZOL. [Concomitant]
     Active Substance: CILOSTAZOL
  9. NEURONTIN [Concomitant]
     Active Substance: GABAPENTIN
  10. TRESIBA [Concomitant]
     Active Substance: INSULIN DEGLUDEC
  11. PROTONIX [Concomitant]
     Active Substance: PANTOPRAZOLE SODIUM
  12. VELTASSA [Suspect]
     Active Substance: PATIROMER
     Indication: HYPERKALAEMIA
     Route: 048
     Dates: start: 20160619
  13. LUMIGAN [Concomitant]
     Active Substance: BIMATOPROST
  14. MIRALAX [Concomitant]
     Active Substance: POLYETHYLENE GLYCOL 3350
  15. LOPID [Concomitant]
     Active Substance: GEMFIBROZIL
  16. CARBAMAZEPINE. [Concomitant]
     Active Substance: CARBAMAZEPINE
  17. VELTASSA [Suspect]
     Active Substance: PATIROMER
     Dates: start: 20170101
  18. NOVOLOG [Concomitant]
     Active Substance: INSULIN ASPART
  19. MAGNESIUM [Concomitant]
     Active Substance: MAGNESIUM
  20. ZETIA [Concomitant]
     Active Substance: EZETIMIBE

REACTIONS (5)
  - Malaise [Not Recovered/Not Resolved]
  - Vomiting [Unknown]
  - Constipation [Not Recovered/Not Resolved]
  - Gastroenteritis viral [Not Recovered/Not Resolved]
  - Drug dose omission [Unknown]

NARRATIVE: CASE EVENT DATE: 20160619
